FAERS Safety Report 13061313 (Version 1)
Quarter: 2016Q4

REPORT INFORMATION
  Report Type: Spontaneous
  Country: TH (occurrence: TH)
  Receive Date: 20161226
  Receipt Date: 20161226
  Transmission Date: 20170207
  Serious: Yes (Other)
  Sender: FDA-Public Use
  Company Number: TH-GLENMARK PHARMACEUTICALS INC, USA.-2016GMK025509

PATIENT

DRUGS (1)
  1. TRIAMCINOLONE ACETONIDE. [Suspect]
     Active Substance: TRIAMCINOLONE ACETONIDE
     Indication: KELOID SCAR
     Dosage: UNK
     Route: 026

REACTIONS (2)
  - Prescribed overdose [Recovering/Resolving]
  - Cushing^s syndrome [Recovering/Resolving]
